FAERS Safety Report 20638763 (Version 1)
Quarter: 2022Q1

REPORT INFORMATION
  Report Type: Spontaneous
  Country: US (occurrence: US)
  Receive Date: 20220325
  Receipt Date: 20220325
  Transmission Date: 20220424
  Serious: Yes (Other)
  Sender: FDA-Public Use
  Company Number: US-MLMSERVICE-20220314-3427864-1

PATIENT
  Age: 49 Year
  Sex: Male

DRUGS (6)
  1. VINCRISTINE SULFATE [Suspect]
     Active Substance: VINCRISTINE SULFATE
     Indication: B precursor type acute leukaemia
     Dosage: COMPLETED THE FIRST CYCLE OF INDUCTION THERAPY (HYPER CVAD)
  2. DOXORUBICIN HYDROCHLORIDE [Suspect]
     Active Substance: DOXORUBICIN HYDROCHLORIDE
     Indication: B precursor type acute leukaemia
     Dosage: COMPLETED THE FIRST CYCLE OF INDUCTION THERAPY (HYPER CVAD)
  3. CYTARABINE [Suspect]
     Active Substance: CYTARABINE
     Indication: B precursor type acute leukaemia
     Dosage: COMPLETED THE FIRST CYCLE OF INDUCTION THERAPY (HYPER CVAD)
  4. METHOTREXATE SODIUM [Suspect]
     Active Substance: METHOTREXATE SODIUM
     Indication: B precursor type acute leukaemia
     Dosage: COMPLETED THE FIRST CYCLE OF INDUCTION THERAPY (HYPER CVAD)
  5. DEXAMETHASONE [Suspect]
     Active Substance: DEXAMETHASONE
     Indication: B precursor type acute leukaemia
     Dosage: COMPLETED THE FIRST CYCLE OF INDUCTION THERAPY (HYPER CVAD)
  6. CYCLOPHOSPHAMIDE [Suspect]
     Active Substance: CYCLOPHOSPHAMIDE
     Indication: B precursor type acute leukaemia
     Dosage: COMPLETED THE FIRST CYCLE OF INDUCTION THERAPY (HYPER CVAD)

REACTIONS (8)
  - Escherichia infection [Recovered/Resolved]
  - Pathogen resistance [Recovered/Resolved]
  - Febrile neutropenia [Recovered/Resolved]
  - Thrombocytopenia [Recovered/Resolved]
  - Appendiceal abscess [Recovered/Resolved]
  - Appendicitis perforated [Recovered/Resolved]
  - Appendicitis [Recovered/Resolved]
  - Lactic acidosis [Unknown]
